FAERS Safety Report 6327254-9 (Version None)
Quarter: 2009Q3

REPORT INFORMATION
  Report Type: 
  Country: None (occurrence: None)
  Receive Date: 20090825
  Receipt Date: 20090819
  Transmission Date: 20100115
  Serious: Yes (Hospitalization, Other)
  Sender: FDA-Public Use
  Company Number: GB-TEVA-206664ISR

PATIENT
  Age: 48 Year
  Sex: Male
  Weight: 91.5 kg

DRUGS (1)
  1. LISINOPRIL [Suspect]
     Indication: HYPERTENSION
     Route: 048
     Dates: start: 20090313, end: 20090714

REACTIONS (1)
  - PANCREATITIS NECROTISING [None]
